FAERS Safety Report 9626848 (Version 5)
Quarter: 2014Q3

REPORT INFORMATION
  Report Type: Report from Study
  Country: JP (occurrence: JP)
  Receive Date: 20131016
  Receipt Date: 20140904
  Transmission Date: 20150326
  Serious: Yes (Death, Other)
  Sender: FDA-Public Use
  Company Number: JP-ABBVIE-13X-087-1129246-00

PATIENT
  Age: 69 Year
  Sex: Male
  Weight: 43 kg

DRUGS (2)
  1. LIPACREON GRANULES 300 MG SACHET [Suspect]
     Active Substance: PANCRELIPASE
     Indication: PANCREATIC INSUFFICIENCY
     Dosage: DAILY DOSE: 1800 MG; SACHET
     Route: 048
     Dates: start: 20120811, end: 20121130
  2. LANSOPRAZOLE. [Concomitant]
     Active Substance: LANSOPRAZOLE
     Indication: PANCREATICODUODENECTOMY
     Route: 048
     Dates: end: 20121208

REACTIONS (9)
  - Protein total decreased [Not Recovered/Not Resolved]
  - Diarrhoea [Unknown]
  - Pancreatic carcinoma recurrent [Fatal]
  - Unevaluable event [Fatal]
  - Blood albumin decreased [Not Recovered/Not Resolved]
  - Pancreatic carcinoma [Fatal]
  - Jaundice cholestatic [Fatal]
  - Weight decreased [Not Recovered/Not Resolved]
  - Hepatic failure [Fatal]

NARRATIVE: CASE EVENT DATE: 201210
